FAERS Safety Report 16638368 (Version 1)
Quarter: 2019Q3

REPORT INFORMATION
  Report Type: Report from Study
  Country: US (occurrence: US)
  Receive Date: 20190726
  Receipt Date: 20190726
  Transmission Date: 20191004
  Serious: Yes (Hospitalization)
  Sender: FDA-Public Use
  Company Number: US-BAUSCH-BL-2019-021490

PATIENT
  Sex: Female

DRUGS (2)
  1. XENAZINE [Suspect]
     Active Substance: TETRABENAZINE
     Indication: HUNTINGTON^S DISEASE
     Dosage: 3 TABLETS IN MORNING, 1 TABLET IN DAYTIME/MIDDAY AND 1 TABLET IN EVENING
     Route: 065
     Dates: start: 20151022
  2. XENAZINE [Suspect]
     Active Substance: TETRABENAZINE
     Dosage: 2 TABS IN AM, 1 TAB IN MIDDAY, 1 TAB IN EVENING?OUT OF MEDICATION FOR 3 WEEKS
     Route: 065
     Dates: start: 20161023, end: 2019

REACTIONS (2)
  - Therapy cessation [Unknown]
  - Huntington^s disease [Unknown]

NARRATIVE: CASE EVENT DATE: 2019
